FAERS Safety Report 8983740 (Version 1)
Quarter: 2012Q4

REPORT INFORMATION
  Report Type: Report from Study
  Country: DE (occurrence: DE)
  Receive Date: 20121224
  Receipt Date: 20121224
  Transmission Date: 20130627
  Serious: Yes (Hospitalization, Other)
  Sender: FDA-Public Use
  Company Number: DE-ROCHE-1151023

PATIENT
  Age: 42 Year
  Sex: Female
  Weight: 92 kg

DRUGS (3)
  1. BEVACIZUMAB [Suspect]
     Indication: BREAST CANCER
     Dosage: Date of last dose prior to SAE: 04/Oct/2012
     Route: 042
     Dates: start: 20120621
  2. MYOCET [Suspect]
     Indication: BREAST CANCER
     Dosage: Date of last dose prior to SAE: 18/Oct/2012
     Route: 042
     Dates: start: 20120621
  3. PACLITAXEL [Suspect]
     Indication: BREAST CANCER
     Dosage: Date of last dose prior to SAE: 18/Oct/2012
     Route: 042
     Dates: start: 20120621

REACTIONS (3)
  - Diarrhoea [Recovered/Resolved]
  - Pneumonitis [Recovered/Resolved]
  - Alveolitis [Recovered/Resolved]
